FAERS Safety Report 8588012-8 (Version None)
Quarter: 2012Q3

REPORT INFORMATION
  Report Type: 
  Country: None (occurrence: None)
  Receive Date: 20120813
  Receipt Date: 20120725
  Transmission Date: 20120928
  Serious: No
  Sender: FDA-Public Use
  Company Number: US-009507513-1208USA000518

PATIENT

DRUGS (3)
  1. JANUMET [Suspect]
     Indication: DIABETES MELLITUS
     Route: 048
  2. JANUVIA [Suspect]
     Indication: DIABETES MELLITUS
     Route: 048
  3. METFORMIN HYDROCHLORIDE [Suspect]
     Indication: DIABETES MELLITUS

REACTIONS (1)
  - LIPASE INCREASED [None]
